FAERS Safety Report 21657346 (Version 1)
Quarter: 2022Q4

REPORT INFORMATION
  Report Type: 
  Country: US (occurrence: US)
  Receive Date: 20221129
  Receipt Date: 20221129
  Transmission Date: 20230113
  Serious: Yes (Hospitalization, Other)
  Sender: FDA-Public Use
  Company Number: US-MannKind Corporation-2022MK000406

PATIENT
  Age: 38 Year
  Sex: Female
  Weight: 54.480 kg

DRUGS (3)
  1. AFREZZA [Suspect]
     Active Substance: INSULIN HUMAN
     Indication: Latent autoimmune diabetes in adults
     Dosage: 8UNITS WITH MEALS, ADDITIONAL 4-8 UNITS IF 1 HOUR POSTPRANDIAL BLOOD GLUCOSE IS MORE THAN 150 MG/DL
     Dates: start: 20221108
  2. TRESIBA [Concomitant]
     Active Substance: INSULIN DEGLUDEC
     Indication: Diabetes mellitus
     Dosage: EVERY EVENING
     Dates: start: 20221108
  3. GLIMEPIRIDE [Concomitant]
     Active Substance: GLIMEPIRIDE
     Indication: Diabetes mellitus
     Dates: start: 20221113

REACTIONS (8)
  - Peripheral swelling [Recovering/Resolving]
  - Dyspnoea [Unknown]
  - Pericardial effusion [Unknown]
  - Chest discomfort [Unknown]
  - Nasal congestion [Unknown]
  - Dry throat [Unknown]
  - Weight increased [Unknown]
  - Cough [Unknown]

NARRATIVE: CASE EVENT DATE: 20221101
